FAERS Safety Report 14139174 (Version 1)
Quarter: 2017Q4

REPORT INFORMATION
  Report Type: Spontaneous
  Country: GB (occurrence: GB)
  Receive Date: 20171028
  Receipt Date: 20171028
  Transmission Date: 20180321
  Serious: Yes (Other)
  Sender: FDA-Public Use
  Company Number: GB-AUROBINDO-AUR-APL-2017-42503

PATIENT
  Age: 58 Year
  Sex: Female
  Weight: 82.55 kg

DRUGS (2)
  1. CEFALEXIN TABLETS [Suspect]
     Active Substance: CEPHALEXIN
     Indication: KIDNEY INFECTION
     Route: 048
     Dates: start: 20170919, end: 20170919
  2. CO-AMOXICLAV                       /00756801/ [Concomitant]
     Active Substance: AMOXICILLIN\CLAVULANIC ACID
     Indication: KIDNEY INFECTION
     Route: 048
     Dates: start: 20170915, end: 20170918

REACTIONS (3)
  - Panic reaction [Recovered/Resolved]
  - Paraesthesia [Recovered/Resolved]
  - Hypoaesthesia [Recovered/Resolved]

NARRATIVE: CASE EVENT DATE: 20170919
